FAERS Safety Report 5355133-2 (Version None)
Quarter: 2007Q2

REPORT INFORMATION
  Report Type: 
  Country: None (occurrence: None)
  Receive Date: 20070531
  Receipt Date: 20070328
  Transmission Date: 20071010
  Serious: Yes (Other)
  Sender: FDA-Public Use
  Company Number: PHEH2007US03212

PATIENT
  Age: 38 Year
  Sex: Female

DRUGS (25)
  1. DESFERAL [Suspect]
  2. EXJADE [Suspect]
     Indication: IRON OVERLOAD
     Dosage: 1125 MG, QD; ORAL; 1125 MG, QD; ORAL
     Route: 048
     Dates: start: 20060526, end: 20070116
  3. REVLIMID [Concomitant]
  4. BLOOD TRANSFUSION, AUXILIARY PRODUCTS (NO INGREDIENTS SUBSTANCES) [Concomitant]
  5. PLATELETS [Concomitant]
  6. NEUPOGEN [Concomitant]
  7. ARANESP [Concomitant]
  8. SYNTHROID [Concomitant]
  9. CYMBALTA [Concomitant]
  10. K-DUR 10 [Concomitant]
  11. THIAMINE (THIAMINE) [Concomitant]
  12. FOLIC ACID [Concomitant]
  13. B12 (CYANOCOBALAMIN-TANNIN COMPLEX) [Concomitant]
  14. LASIX [Concomitant]
  15. PMS-CONJUGATED ESTROGENS (ESTROGENS CONJUGATED) [Concomitant]
  16. NEURONTIN [Concomitant]
  17. LOMOTIL [Concomitant]
  18. PHENERGAN (PROMETHIAZINE HYDROCHLORIDE) [Concomitant]
  19. PHENERGAN [Concomitant]
  20. COMPAZINE [Concomitant]
  21. MIRAPEX [Concomitant]
  22. AMITRIPTYLINE HCL [Concomitant]
  23. ACETAMINOPHEN [Concomitant]
  24. TYLENOL COLD + FLU (CHLORPHENAMINE MALEATE, DEXTROMETHORPHAN HYDROBROM [Concomitant]
  25. CALCIUM CARBONATE W/VITAMIN D NOS (CALCIUM CARBONATE, VITAMIN D NOS) [Concomitant]

REACTIONS (2)
  - COPPER DEFICIENCY [None]
  - NEUROPATHY [None]
